FAERS Safety Report 24204697 (Version 1)
Quarter: 2024Q3

REPORT INFORMATION
  Report Type: Spontaneous
  Country: GB (occurrence: GB)
  Receive Date: 20240813
  Receipt Date: 20240813
  Transmission Date: 20241017
  Serious: Yes (Other)
  Sender: MYLAN
  Company Number: GB-MHRA-TPP11914458C7119513YC1723022240500

PATIENT
  Age: 63 Year
  Sex: Female
  Weight: 103 kg

DRUGS (21)
  1. FAMOTIDINE [Suspect]
     Active Substance: FAMOTIDINE
     Indication: Product used for unknown indication
     Dosage: 20 MILLIGRAM, QD (TAKE ONE TABLET ONCE DAILY)
     Route: 065
     Dates: start: 20240719
  2. HYDROCORTISONE [Concomitant]
     Active Substance: HYDROCORTISONE\HYDROCORTISONE ACETATE
     Indication: Ill-defined disorder
     Dosage: UNK, BID (APPLY TWICE DAILY TO AFFECTED AREA)
     Route: 065
     Dates: start: 20240605, end: 20240619
  3. DIORALYTE [Concomitant]
     Active Substance: CITRIC ACID MONOHYDRATE\DEXTROSE\POTASSIUM CATION\SODIUM CHLORIDE
     Indication: Ill-defined disorder
     Dosage: UNK (DISSOLVE CONTENTS OF ONE SACHET INTO 200ML FRES)
     Route: 065
     Dates: start: 20240710, end: 20240712
  4. LOPERAMIDE [Concomitant]
     Active Substance: LOPERAMIDE
     Indication: Ill-defined disorder
     Dosage: 2 DOSAGE FORM (TAKE TWO CAPSULES TO START WITH. THEN TAKE ONE)
     Route: 065
     Dates: start: 20240710
  5. LOPERAMIDE [Concomitant]
     Active Substance: LOPERAMIDE
     Dosage: 1 DOSAGE FORM (THEN TAKE ONE)
     Route: 065
     Dates: end: 20240715
  6. LEVEMIR [Concomitant]
     Active Substance: INSULIN DETEMIR
     Indication: Ill-defined disorder
     Dosage: UNK (USE AS DIRECTED BY DIABETES TEAM)
     Route: 065
     Dates: start: 20221012, end: 20240508
  7. OLMESARTAN MEDOXOMIL [Concomitant]
     Active Substance: OLMESARTAN MEDOXOMIL
     Indication: Ill-defined disorder
     Dosage: 2 DOSAGE FORM, QD (TAKE TWO TABLET DAILY (REMEMBER THE ^SICK DAY R)
     Route: 065
     Dates: start: 20221012
  8. FELODIPINE [Concomitant]
     Active Substance: FELODIPINE
     Indication: Ill-defined disorder
     Dosage: 1 DOSAGE FORM, QD (TAKE ONE TABLET ONCE DAILY FOR YOUR BLOOD PRESSURE)
     Route: 065
     Dates: start: 20230208
  9. FELODIPINE [Concomitant]
     Active Substance: FELODIPINE
     Indication: Hypertension
  10. BRIMONIDINE TARTRATE [Concomitant]
     Active Substance: BRIMONIDINE TARTRATE
     Indication: Ill-defined disorder
     Dosage: UNK (INSTIL ONE DROP INTO THE BOTH EYES THREE TIMES)
     Route: 047
     Dates: start: 20231031
  11. DORZOLAMIDE [Concomitant]
     Active Substance: DORZOLAMIDE
     Indication: Ill-defined disorder
     Dosage: UNK, TID (INSTIL ONE DROP INTO BOTH EYES THREE TIMES A DAY)
     Route: 047
     Dates: start: 20231031
  12. DULOXETINE [Concomitant]
     Active Substance: DULOXETINE
     Indication: Ill-defined disorder
     Dosage: 2 DOSAGE FORM, QD (TAKE TWO TABLETS DAILY)
     Route: 065
     Dates: start: 20231031
  13. GLUCAGEN HYPOKIT [Concomitant]
     Active Substance: GLUCAGON HYDROCHLORIDE
     Indication: Ill-defined disorder
     Dosage: UNK (PERSONALLY ADMINISTERED)
     Route: 065
     Dates: start: 20231031
  14. HUMALOG [Concomitant]
     Active Substance: INSULIN LISPRO
     Indication: Ill-defined disorder
     Dosage: UNK (TO BE INJECTED AS PER YOUR DOSAGE REGIME)
     Route: 065
     Dates: start: 20231031
  15. KETOPROFEN [Concomitant]
     Active Substance: KETOPROFEN
     Indication: Ill-defined disorder
     Dosage: UNK, QD (APPLY TWO TO FOUR TIMES DAILY AS NEEDED)
     Route: 065
     Dates: start: 20231031
  16. LANTUS [Concomitant]
     Active Substance: INSULIN GLARGINE
     Indication: Ill-defined disorder
     Dosage: UNK (USE AS DIRECTED)
     Route: 065
     Dates: start: 20231031
  17. LATANOPROST [Concomitant]
     Active Substance: LATANOPROST
     Indication: Ill-defined disorder
     Dosage: UNK, QD (ONE DROP ONCE DAILY AT NIGHT IN BOTH EYES)
     Route: 047
     Dates: start: 20231031
  18. OMEPRAZOLE [Concomitant]
     Active Substance: OMEPRAZOLE
     Indication: Ill-defined disorder
     Dosage: UNK, QD (TAKE ONE OR TWO CAPSULES DAILY)
     Route: 065
     Dates: start: 20231031, end: 20240719
  19. THIAMINE [Concomitant]
     Active Substance: THIAMINE
     Indication: Ill-defined disorder
     Dosage: 3 DOSAGE FORM, QD (TAKE THREE TABLETS ONCE A DAY)
     Route: 065
     Dates: start: 20231031, end: 20240508
  20. NIACINAMIDE\PYRIDOXINE HYDROCHLORIDE\RIBOFLAVIN\THIAMINE HYDROCHLORIDE [Concomitant]
     Active Substance: NIACINAMIDE\PYRIDOXINE HYDROCHLORIDE\RIBOFLAVIN\THIAMINE HYDROCHLORIDE
     Indication: Ill-defined disorder
     Dosage: 1 DOSAGE FORM, QD (TAKE ONE TABLET ONCE A DAY)
     Route: 065
     Dates: start: 20231031
  21. XAILIN NIGHT [Concomitant]
     Indication: Ill-defined disorder
     Dosage: UNK (APPLY AT NIGHT TO BOTH EYES)
     Route: 047
     Dates: start: 20231031, end: 20240508

REACTIONS (3)
  - Pruritus [Recovered/Resolved]
  - Swelling [Unknown]
  - Dry mouth [Unknown]
